FAERS Safety Report 20691135 (Version 1)
Quarter: 2022Q2

REPORT INFORMATION
  Report Type: Spontaneous
  Country: US (occurrence: US)
  Receive Date: 20220408
  Receipt Date: 20220408
  Transmission Date: 20220720
  Serious: No
  Sender: FDA-Public Use
  Company Number: US-INTRA-CELLULAR THERAPIES, INC.-2022ICT00003

PATIENT
  Sex: Female
  Weight: 59.864 kg

DRUGS (2)
  1. CAPLYTA [Suspect]
     Active Substance: LUMATEPERONE
     Indication: Sleep disorder
     Dosage: 42 MG, 1X/DAY, IN THE EVENING BEFORE BED
     Route: 048
  2. LOTS OF UNSPECIFIED MEDICATIONS [Concomitant]

REACTIONS (5)
  - Frustration tolerance decreased [Not Recovered/Not Resolved]
  - Product package associated injury [Recovering/Resolving]
  - Product physical issue [Unknown]
  - Product packaging difficult to open [Not Recovered/Not Resolved]
  - Off label use [Not Recovered/Not Resolved]
